FAERS Safety Report 7943843-X (Version None)
Quarter: 2011Q4

REPORT INFORMATION
  Report Type: 
  Country: None (occurrence: None)
  Receive Date: 20111128
  Receipt Date: 20111116
  Transmission Date: 20120403
  Serious: Yes (Death)
  Sender: FDA-Public Use
  Company Number: CA-ROCHE-1014194

PATIENT
  Sex: Female
  Weight: 45.854 kg

DRUGS (5)
  1. AVASTIN [Suspect]
     Indication: OVARIAN CANCER
     Route: 042
     Dates: start: 20110825
  2. DEXAMETHASONE [Concomitant]
  3. AVASTIN [Suspect]
     Dosage: MOST RECENT DOSE ON 15/SEP/2011
     Dates: start: 20110915, end: 20110101
  4. TAXOL [Concomitant]
  5. ZOPICLONE [Concomitant]

REACTIONS (1)
  - DEATH [None]
